FAERS Safety Report 5512326-9 (Version None)
Quarter: 2007Q4

REPORT INFORMATION
  Report Type: 
  Country: None (occurrence: None)
  Receive Date: 20071107
  Receipt Date: 20071026
  Transmission Date: 20080405
  Serious: Yes (Other)
  Sender: FDA-Public Use
  Company Number: 200710AGG00741

PATIENT

DRUGS (1)
  1. AGGRASTAT [Suspect]
     Indication: ACUTE MYOCARDIAL INFARCTION
     Dosage: 2.9 ML, 3.2 ML)

REACTIONS (2)
  - DRUG HYPERSENSITIVITY [None]
  - THROMBOCYTOPENIA [None]
